FAERS Safety Report 5646848-7 (Version None)
Quarter: 2008Q1

REPORT INFORMATION
  Report Type: 
  Country: None (occurrence: None)
  Receive Date: 20080229
  Receipt Date: 20080229
  Transmission Date: 20080703
  Serious: No
  Sender: FDA-Public Use
  Company Number: None

PATIENT
  Sex: Male
  Weight: 83.9154 kg

DRUGS (1)
  1. TEMAZEPAM [Suspect]
     Indication: SLEEP DISORDER THERAPY
     Dosage: 15 MG 1/DAY-BEDTIME CAPSULE
     Dates: start: 20080217, end: 20080219

REACTIONS (2)
  - DRUG INEFFECTIVE [None]
  - PHARMACEUTICAL PRODUCT COMPLAINT [None]
